FAERS Safety Report 9788691 (Version 1)
Quarter: 2013Q4

REPORT INFORMATION
  Report Type: Spontaneous
  Country: US (occurrence: US)
  Receive Date: 20131230
  Receipt Date: 20131230
  Transmission Date: 20140711
  Serious: Yes (Hospitalization)
  Sender: FDA-Public Use
  Company Number: US-PFIZER INC-2013370053

PATIENT
  Age: 70 Year
  Sex: Male

DRUGS (1)
  1. REVATIO [Suspect]
     Dosage: 20 MG, 2X/DAY
     Dates: start: 20110408

REACTIONS (2)
  - Loss of consciousness [Unknown]
  - Fall [Unknown]
